FAERS Safety Report 20913456 (Version 1)
Quarter: 2022Q2

REPORT INFORMATION
  Report Type: Spontaneous
  Country: US (occurrence: US)
  Receive Date: 20220603
  Receipt Date: 20220603
  Transmission Date: 20220721
  Serious: No
  Sender: FDA-Public Use
  Company Number: US-009507513-2206USA001077

PATIENT
  Sex: Female

DRUGS (1)
  1. PROVENTIL [Suspect]
     Active Substance: ALBUTEROL
     Dosage: UNK
     Dates: end: 20220520

REACTIONS (4)
  - Peripheral swelling [Recovering/Resolving]
  - Nocturia [Recovering/Resolving]
  - Poor quality sleep [Recovering/Resolving]
  - Product dose omission issue [Unknown]

NARRATIVE: CASE EVENT DATE: 20220520
